FAERS Safety Report 11176721 (Version 1)
Quarter: 2015Q2

REPORT INFORMATION
  Report Type: Report from Study
  Country: BR (occurrence: BR)
  Receive Date: 20150610
  Receipt Date: 20150610
  Transmission Date: 20150821
  Serious: Yes (Death, Hospitalization, Other)
  Sender: FDA-Public Use
  Company Number: PHHY2015BR068340

PATIENT
  Sex: Female

DRUGS (1)
  1. EXELON PATCH [Suspect]
     Active Substance: RIVASTIGMINE
     Indication: PRODUCT USED FOR UNKNOWN INDICATION
     Dosage: PATCH (10 CM2)
     Route: 062

REACTIONS (4)
  - Haemorrhage [Unknown]
  - Gastrointestinal disorder [Unknown]
  - Death [Fatal]
  - Femur fracture [Unknown]

NARRATIVE: CASE EVENT DATE: 20150604
